FAERS Safety Report 4539358-1 (Version None)
Quarter: 2004Q4

REPORT INFORMATION
  Report Type: 
  Country: None (occurrence: None)
  Receive Date: 20041222
  Receipt Date: 20041208
  Transmission Date: 20050328
  Serious: Yes (Hospitalization, Other)
  Sender: FDA-Public Use
  Company Number: 2004-05171

PATIENT
  Age: 57 Year
  Sex: Male

DRUGS (1)
  1. QUININE SULFATE [Suspect]
     Indication: MUSCLE CRAMP
     Dosage: 300 MG, DAILY, PRN, ORAL
     Route: 048

REACTIONS (3)
  - ACUTE PULMONARY OEDEMA [None]
  - HYPERSENSITIVITY [None]
  - OFF LABEL USE [None]
